FAERS Safety Report 9896042 (Version 2)
Quarter: 2014Q1

REPORT INFORMATION
  Report Type: Spontaneous
  Country: US (occurrence: US)
  Receive Date: 20140213
  Receipt Date: 20140213
  Transmission Date: 20141002
  Serious: No
  Sender: FDA-Public Use
  Company Number: US-BRISTOL-MYERS SQUIBB COMPANY-19014844

PATIENT
  Age: 55 Year
  Sex: Female
  Weight: 72.56 kg

DRUGS (12)
  1. ABATACEPT SUBQ INJECTION 125MG/ML [Suspect]
     Indication: RHEUMATOID ARTHRITIS
     Dosage: 1DF: 125MG/ML
     Route: 058
     Dates: start: 20130523
  2. PREDNISONE [Suspect]
  3. ALTACE [Concomitant]
  4. FISH OIL [Concomitant]
  5. FOLIC ACID [Concomitant]
  6. METHOTREXATE [Concomitant]
  7. MVI [Concomitant]
  8. OMEGA 3 FATTY ACID [Concomitant]
  9. OSCAL D [Concomitant]
  10. CALCIUM [Concomitant]
  11. TYLENOL [Concomitant]
  12. VITAMIN B COMPLEX [Concomitant]

REACTIONS (1)
  - Weight decreased [Unknown]
